FAERS Safety Report 9426713 (Version 1)
Quarter: 2013Q3

REPORT INFORMATION
  Report Type: Spontaneous
  Country: US (occurrence: US)
  Receive Date: 20130730
  Receipt Date: 20130730
  Transmission Date: 20140515
  Serious: No
  Sender: FDA-Public Use
  Company Number: US-SANOFI-AVENTIS-2012SA077117

PATIENT
  Sex: Male

DRUGS (1)
  1. ZOLPIDEM TARTRATE [Suspect]
     Indication: SLEEP DISORDER
     Dosage: NIGHTLY AS NEEDED, SOMETIMES TAKES WHOLE TABLET AND AT OTHERS, A HALF OR QUARTER
     Route: 048
     Dates: end: 2012

REACTIONS (9)
  - Weight increased [Unknown]
  - Somnambulism [Unknown]
  - Sleep-related eating disorder [Unknown]
  - Insomnia [Unknown]
  - Therapeutic response decreased [Unknown]
  - Somnambulism [Unknown]
  - Amnesia [Unknown]
  - Hangover [Recovered/Resolved]
  - Wrong technique in drug usage process [Unknown]
